FAERS Safety Report 9257820 (Version 1)
Quarter: 2013Q2

REPORT INFORMATION
  Report Type: Spontaneous
  Country: US (occurrence: None)
  Receive Date: 20130424
  Receipt Date: 20130424
  Transmission Date: 20140414
  Serious: Yes (Life-Threatening)
  Sender: FDA-Public Use
  Company Number: None

PATIENT
  Age: 77 Year
  Sex: Female
  Weight: 75 kg

DRUGS (5)
  1. PRADAXA [Suspect]
     Indication: ATRIAL FIBRILLATION
     Route: 048
     Dates: start: 20101121, end: 20130204
  2. FUROSEMIDE [Concomitant]
  3. ESPIRONOLACTONE [Concomitant]
  4. BISOPROLOL [Concomitant]
  5. DILTIAZEM [Concomitant]

REACTIONS (1)
  - Mesenteric vein thrombosis [None]
